FAERS Safety Report 5571119-7 (Version None)
Quarter: 2007Q4

REPORT INFORMATION
  Report Type: 
  Country: None (occurrence: None)
  Receive Date: 20071221
  Receipt Date: 20071211
  Transmission Date: 20080405
  Serious: Yes (Hospitalization)
  Sender: FDA-Public Use
  Company Number: US-MERCK-0712USA03794

PATIENT
  Age: 49 Year
  Sex: Male

DRUGS (6)
  1. ZETIA [Suspect]
     Route: 048
  2. PRAVACHOL [Suspect]
     Route: 065
  3. GLUCOPHAGE [Concomitant]
     Route: 065
     Dates: start: 20040525
  4. AMARYL [Concomitant]
     Route: 065
     Dates: start: 20040525
  5. ULTRAM [Concomitant]
     Route: 065
     Dates: start: 20040525
  6. ROBAXIN [Concomitant]
     Route: 065
     Dates: start: 20040525

REACTIONS (5)
  - DEHYDRATION [None]
  - GASTROENTERITIS VIRAL [None]
  - HEPATIC ENZYME INCREASED [None]
  - HEPATITIS [None]
  - HYPERTENSION [None]
